FAERS Safety Report 8815029 (Version 1)
Quarter: 2012Q4

REPORT INFORMATION
  Report Type: 
  Country: US (occurrence: US)
  Receive Date: 20120928
  Receipt Date: 20120928
  Transmission Date: 20130627
  Serious: Yes (Hospitalization, Other)
  Sender: FDA-Public Use
  Company Number: US-ELI_LILLY_AND_COMPANY-US201209006074

PATIENT
  Age: 66 Year
  Sex: Female

DRUGS (10)
  1. FORTEO [Suspect]
     Indication: OSTEOPOROSIS
     Dosage: 20 ug, qd
     Dates: start: 20120901
  2. MEDROL [Concomitant]
     Dosage: 3 mg, qd
  3. METHOTREXATE [Concomitant]
     Dosage: 2.5 mg, 3 tablets once weekly (1/W)
  4. CALCIUM [Concomitant]
     Dosage: 500 mg, bid
  5. VITAMIN D [Concomitant]
     Dosage: 200 u, bid
  6. METOPROLOL [Concomitant]
     Dosage: 50 mg, one tablet bid
  7. MICARDIS [Concomitant]
     Dosage: 80 mg, qd
  8. NEXIUM [Concomitant]
     Dosage: 40 mg, qd
  9. SPIRONOLACTONE [Concomitant]
     Dosage: 25 mg, qd
  10. PRENATAL VITAMINS                  /01549301/ [Concomitant]
     Dosage: UNK, qd

REACTIONS (3)
  - Compression fracture [Unknown]
  - Pain [Not Recovered/Not Resolved]
  - Rib fracture [Unknown]
